FAERS Safety Report 23289895 (Version 2)
Quarter: 2023Q4

REPORT INFORMATION
  Report Type: Report from Study
  Country: RO (occurrence: RO)
  Receive Date: 20231212
  Receipt Date: 20231215
  Transmission Date: 20240109
  Serious: Yes (Death, Hospitalization, Other)
  Sender: FDA-Public Use
  Company Number: RO-ABBVIE-5528872

PATIENT
  Age: 75 Year
  Sex: Female

DRUGS (2)
  1. CARBIDOPA\LEVODOPA [Suspect]
     Active Substance: CARBIDOPA\LEVODOPA
     Indication: Parkinson^s disease
     Dosage: DM=7.00 DC=4.50 ED=2.00 NRED=0; DMN=0.00 DCN=2.00 EDN=2.00 NREDN=0
     Route: 050
     Dates: start: 20220530, end: 20231212
  2. CARBIDOPA\LEVODOPA [Suspect]
     Active Substance: CARBIDOPA\LEVODOPA

REACTIONS (8)
  - Cardio-respiratory arrest [Fatal]
  - Musculoskeletal stiffness [Unknown]
  - Tremor [Unknown]
  - Malaise [Unknown]
  - Vomiting [Unknown]
  - Clostridium difficile colitis [Unknown]
  - Septic shock [Unknown]
  - Bronchopneumopathy [Unknown]

NARRATIVE: CASE EVENT DATE: 20231201
